FAERS Safety Report 10238946 (Version 1)
Quarter: 2014Q2

REPORT INFORMATION
  Report Type: Spontaneous
  Country: US (occurrence: None)
  Receive Date: 20140613
  Receipt Date: 20140613
  Transmission Date: 20141212
  Serious: No
  Sender: FDA-Public Use
  Company Number: None

PATIENT
  Age: 9 Month
  Sex: Female
  Weight: 61.24 kg

DRUGS (1)
  1. ASTHMANEFRIN [Suspect]
     Indication: ASTHMA
     Dosage: 2 INHALATIONS
     Route: 055
     Dates: start: 20140610

REACTIONS (4)
  - Chest pain [None]
  - Palpitations [None]
  - Dizziness [None]
  - Nausea [None]
